FAERS Safety Report 10477089 (Version 2)
Quarter: 2015Q1

REPORT INFORMATION
  Report Type: Spontaneous
  Country: US (occurrence: US)
  Receive Date: 20140926
  Receipt Date: 20150109
  Transmission Date: 20150720
  Serious: Yes (Hospitalization)
  Sender: FDA-Public Use
  Company Number: US-BIOGENIDEC-2014BI097417

PATIENT
  Age: 71 Year
  Sex: Male

DRUGS (1)
  1. TECFIDERA [Suspect]
     Active Substance: DIMETHYL FUMARATE
     Indication: MULTIPLE SCLEROSIS

REACTIONS (4)
  - Balance disorder [Unknown]
  - Osteomyelitis [Unknown]
  - Fall [Recovered/Resolved]
  - Subdural haematoma [Unknown]

NARRATIVE: CASE EVENT DATE: 20140910
